FAERS Safety Report 23331720 (Version 1)
Quarter: 2023Q4

REPORT INFORMATION
  Report Type: Spontaneous
  Country: US (occurrence: US)
  Receive Date: 20231222
  Receipt Date: 20231222
  Transmission Date: 20240109
  Serious: No
  Sender: FDA-Public Use
  Company Number: US-MYLANLABS-2023M1132902

PATIENT
  Sex: Female

DRUGS (1)
  1. ESTRADIOL TRANSDERMAL SYSTEM [Suspect]
     Active Substance: ESTRADIOL
     Indication: Hot flush
     Dosage: 0.05 MILLIGRAM, QD
     Route: 062
     Dates: start: 202312

REACTIONS (3)
  - Application site pain [Unknown]
  - Drug dose omission by device [Unknown]
  - Product adhesion issue [Unknown]
